FAERS Safety Report 25662855 (Version 2)
Quarter: 2025Q3

REPORT INFORMATION
  Report Type: Spontaneous
  Country: JP (occurrence: JP)
  Receive Date: 20250811
  Receipt Date: 20250819
  Transmission Date: 20251020
  Serious: Yes (Hospitalization)
  Sender: AMGEN
  Company Number: JP-DSJP-DS-2025-157148-

PATIENT
  Age: 83 Year
  Sex: Female

DRUGS (2)
  1. DENOSUMAB [Suspect]
     Active Substance: DENOSUMAB
     Indication: Osteoporosis
     Dosage: 60 MG, ONCE EVERY 6 MO
     Route: 065
     Dates: start: 2017, end: 202502
  2. EVENITY [Concomitant]
     Active Substance: ROMOSOZUMAB-AQQG
     Indication: Osteoporosis
     Dosage: 210 MG, ONCE EVERY 1 MO
     Route: 058
     Dates: start: 202505, end: 202507

REACTIONS (1)
  - Atypical fracture [Not Recovered/Not Resolved]

NARRATIVE: CASE EVENT DATE: 20250701
